FAERS Safety Report 7753824-7 (Version None)
Quarter: 2011Q3

REPORT INFORMATION
  Report Type: 
  Country: None (occurrence: None)
  Receive Date: 20110915
  Receipt Date: 20110913
  Transmission Date: 20111222
  Serious: Yes (Death, Hospitalization)
  Sender: FDA-Public Use
  Company Number: US-MPIJNJ-2011-02673

PATIENT
  Sex: Male
  Weight: 80 kg

DRUGS (10)
  1. TRAMADOL HCL [Concomitant]
     Indication: PRODUCT USED FOR UNKNOWN INDICATION
  2. AREDIA [Suspect]
     Indication: HYPERCALCAEMIA
     Dosage: UNK
     Dates: start: 20110526, end: 20110526
  3. DEXAMETHASONE [Suspect]
     Indication: MULTIPLE MYELOMA
     Dosage: 20 MG, CYCLIC
     Route: 048
     Dates: start: 20110609, end: 20110617
  4. VELCADE [Suspect]
     Indication: MULTIPLE MYELOMA
     Dosage: 2.6 MG/M2, CYCLIC
     Route: 040
     Dates: start: 20110609
  5. LENALIDOMIDE [Suspect]
     Indication: MULTIPLE MYELOMA
     Dosage: 25 MG, CYCLIC
     Route: 048
     Dates: start: 20110609
  6. LENALIDOMIDE [Suspect]
     Dosage: 5 UNK, UNK
     Route: 048
     Dates: start: 20110613, end: 20110616
  7. ASPIRIN [Concomitant]
     Indication: MULTIPLE MYELOMA
     Dosage: 325 MG, QD
     Route: 048
     Dates: start: 20110609
  8. VELCADE [Suspect]
     Dosage: 1.3 MG, UNK
     Route: 040
     Dates: start: 20110613, end: 20110616
  9. FENTANYL [Concomitant]
     Indication: PRODUCT USED FOR UNKNOWN INDICATION
  10. ALBUTEROL [Concomitant]
     Indication: PRODUCT USED FOR UNKNOWN INDICATION

REACTIONS (5)
  - MULTI-ORGAN FAILURE [None]
  - HEPATIC FAILURE [None]
  - ACUTE RESPIRATORY DISTRESS SYNDROME [None]
  - SEPSIS [None]
  - RENAL FAILURE ACUTE [None]
